FAERS Safety Report 5571516-X (Version None)
Quarter: 2007Q4

REPORT INFORMATION
  Report Type: 
  Country: None (occurrence: None)
  Receive Date: 20071221
  Receipt Date: 20071210
  Transmission Date: 20080405
  Serious: Yes (Hospitalization)
  Sender: FDA-Public Use
  Company Number: ES-TYCO HEALTHCARE/MALLINCKRODT-T200701040

PATIENT

DRUGS (3)
  1. OPTIRAY 300 [Suspect]
     Indication: COMPUTERISED TOMOGRAM
     Dosage: 100 ML, SINGLE
     Route: 042
     Dates: start: 20070824, end: 20070824
  2. LORAZEPAM [Concomitant]
  3. RISPERDAL [Concomitant]

REACTIONS (4)
  - ERYTHEMA [None]
  - NASAL CONGESTION [None]
  - PRURITUS [None]
  - RASH MACULO-PAPULAR [None]
